FAERS Safety Report 9358178 (Version 1)
Quarter: 2013Q2

REPORT INFORMATION
  Report Type: Spontaneous
  Country: US (occurrence: None)
  Receive Date: 20130619
  Receipt Date: 20130619
  Transmission Date: 20140414
  Serious: Yes (Other)
  Sender: FDA-Public Use
  Company Number: None

PATIENT
  Age: 37 Year
  Sex: Male
  Weight: 133 kg

DRUGS (7)
  1. USTEKINUMAB (STELARA) [Suspect]
     Indication: PSORIASIS
     Dosage: Q3 MONTHS
     Route: 058
     Dates: start: 20120703, end: 20130131
  2. CLOBETASOL [Concomitant]
  3. ADVAIR [Concomitant]
  4. COMBIVENT [Concomitant]
  5. MTX [Concomitant]
  6. ENBREL [Concomitant]
  7. HUMIRA [Concomitant]

REACTIONS (1)
  - Rectal adenocarcinoma [None]
